FAERS Safety Report 10775558 (Version 1)
Quarter: 2015Q1

REPORT INFORMATION
  Report Type: Spontaneous
  Country: NO (occurrence: NO)
  Receive Date: 20150209
  Receipt Date: 20150209
  Transmission Date: 20150721
  Serious: Yes (Other)
  Sender: FDA-Public Use
  Company Number: NO-TEVA-538627ISR

PATIENT
  Age: 75 Year
  Sex: Female

DRUGS (1)
  1. ALENDRONIC ACID [Suspect]
     Active Substance: ALENDRONIC ACID
     Route: 048

REACTIONS (1)
  - Osteonecrosis [Recovering/Resolving]
